FAERS Safety Report 16948416 (Version 1)
Quarter: 2019Q4

REPORT INFORMATION
  Report Type: Spontaneous
  Country: US (occurrence: US)
  Receive Date: 20191022
  Receipt Date: 20191022
  Transmission Date: 20200122
  Serious: Yes (Other)
  Sender: FDA-Public Use
  Company Number: US-BEH-2019108142

PATIENT
  Sex: Female

DRUGS (1)
  1. SET, I.V. FLUID TRANSFER/ NEEDLE, HYPODERMIC, SINGLE LUMEN [Suspect]
     Active Substance: .ALPHA.1-PROTEINASE INHIBITOR HUMAN
     Dosage: UNK UNK, QW
     Route: 065

REACTIONS (8)
  - Malaise [Unknown]
  - Oropharyngeal discomfort [Unknown]
  - Chest pain [Unknown]
  - Headache [Unknown]
  - Drug ineffective [Unknown]
  - Respiratory tract infection [Unknown]
  - Nausea [Unknown]
  - Product contamination chemical [Unknown]
